FAERS Safety Report 5731087-1 (Version None)
Quarter: 2008Q2

REPORT INFORMATION
  Report Type: 
  Country: None (occurrence: None)
  Receive Date: 20080505
  Receipt Date: 20080423
  Transmission Date: 20081010
  Serious: Yes (Hospitalization, Other)
  Sender: FDA-Public Use
  Company Number: CERZ-1000034

PATIENT
  Age: 32 Year
  Sex: Male

DRUGS (2)
  1. CEREZYME [Suspect]
     Indication: GAUCHER'S DISEASE
     Dosage: 4000 U, Q2W, INTRAVENOUS, 2000 U, 2QW
     Route: 042
     Dates: start: 19930101
  2. CEREZYME [Suspect]
     Indication: GAUCHER'S DISEASE
     Dosage: 4000 U, Q2W, INTRAVENOUS, 2000 U, 2QW
     Route: 042
     Dates: start: 20050608

REACTIONS (5)
  - DRUG DOSE OMISSION [None]
  - SPLEEN DISORDER [None]
  - SPLENIC RUPTURE [None]
  - SPLENOMEGALY [None]
  - TREATMENT NONCOMPLIANCE [None]
